FAERS Safety Report 21580906 (Version 2)
Quarter: 2022Q4

REPORT INFORMATION
  Report Type: Spontaneous
  Country: ES (occurrence: ES)
  Receive Date: 20221111
  Receipt Date: 20221201
  Transmission Date: 20230113
  Serious: Yes (Other)
  Sender: FDA-Public Use
  Company Number: ES-BAYER-2022P020930

PATIENT
  Age: 75 Year
  Sex: Male

DRUGS (1)
  1. RIVAROXABAN [Suspect]
     Active Substance: RIVAROXABAN
     Indication: Pulmonary embolism
     Dosage: UNK
     Route: 048
     Dates: start: 20220912, end: 20221010

REACTIONS (1)
  - Pneumonitis chemical [Recovering/Resolving]

NARRATIVE: CASE EVENT DATE: 20221017
